FAERS Safety Report 9375907 (Version 1)
Quarter: 2013Q2

REPORT INFORMATION
  Report Type: Spontaneous
  Country: CY (occurrence: CY)
  Receive Date: 20130628
  Receipt Date: 20130628
  Transmission Date: 20140414
  Serious: Yes (Life-Threatening, Hospitalization)
  Sender: FDA-Public Use
  Company Number: CY-ASTRAZENECA-2013SE49428

PATIENT
  Sex: Male

DRUGS (2)
  1. SEROQUEL [Suspect]
     Indication: BIPOLAR DISORDER
     Route: 042
  2. VALIUM [Concomitant]

REACTIONS (2)
  - Loss of consciousness [Recovered/Resolved]
  - Intentional drug misuse [Unknown]
